FAERS Safety Report 7395993-7 (Version None)
Quarter: 2011Q2

REPORT INFORMATION
  Report Type: 
  Country: None (occurrence: None)
  Receive Date: 20110406
  Receipt Date: 20110404
  Transmission Date: 20111010
  Serious: Yes (Life-Threatening)
  Sender: FDA-Public Use
  Company Number: FR-SHIRE-SPV1-2011-00559

PATIENT

DRUGS (1)
  1. ELAPRASE [Suspect]
     Indication: MUCOPOLYSACCHARIDOSIS II
     Dosage: 1 DF, UNKNOWN
     Route: 041
     Dates: start: 20101213

REACTIONS (2)
  - SHOCK [None]
  - INFUSION RELATED REACTION [None]
